FAERS Safety Report 7304838-2 (Version None)
Quarter: 2011Q1

REPORT INFORMATION
  Report Type: 
  Country: None (occurrence: None)
  Receive Date: 20110222
  Receipt Date: 20110208
  Transmission Date: 20110831
  Serious: Yes (Hospitalization, Other)
  Sender: FDA-Public Use
  Company Number: ES-ELI_LILLY_AND_COMPANY-ES201008004371

PATIENT
  Sex: Female
  Weight: 50 kg

DRUGS (5)
  1. KENESIL [Concomitant]
     Indication: HEARING IMPAIRED
     Dosage: UNK, UNKNOWN
     Route: 065
  2. OROCAL [Concomitant]
     Indication: OSTEOPOROSIS
     Dosage: UNK, DAILY (1/D)
     Route: 048
  3. FORTEO [Suspect]
     Indication: OSTEOPOROSIS
     Dosage: 20 UG, DAILY (1/D)
     Route: 058
     Dates: start: 20091222
  4. ENANTYUM [Concomitant]
     Indication: PAIN
     Dosage: UNK, 2/D
     Route: 048
  5. PROZAC [Concomitant]
     Indication: DEPRESSION
     Dosage: UNK, DAILY (1/D)
     Route: 048

REACTIONS (3)
  - HUMERUS FRACTURE [None]
  - HEARING IMPAIRED [None]
  - DIZZINESS [None]
